FAERS Safety Report 9717030 (Version 1)
Quarter: 2013Q4

REPORT INFORMATION
  Report Type: Spontaneous
  Country: US (occurrence: None)
  Receive Date: 20131125
  Receipt Date: 20131125
  Transmission Date: 20140711
  Serious: Yes (Other)
  Sender: FDA-Public Use
  Company Number: 2013P1021131

PATIENT
  Sex: 0

DRUGS (1)
  1. DIPHENHYDRAMINE [Suspect]

REACTIONS (1)
  - Electrocardiogram QRS complex prolonged [None]
